FAERS Safety Report 15461542 (Version 1)
Quarter: 2018Q4

REPORT INFORMATION
  Report Type: Spontaneous
  Country: IT (occurrence: IT)
  Receive Date: 20181003
  Receipt Date: 20181003
  Transmission Date: 20190204
  Serious: Yes (Other)
  Sender: FDA-Public Use
  Company Number: IT-MISSION PHARMACAL COMPANY-2055659

PATIENT
  Age: 80 Year
  Sex: Female

DRUGS (1)
  1. BINOSTO [Suspect]
     Active Substance: ALENDRONATE SODIUM
     Indication: OSTEOPOROSIS
     Route: 065
     Dates: start: 20170520, end: 20180415

REACTIONS (2)
  - Visual acuity reduced [Recovered/Resolved]
  - Foreign body sensation in eyes [Recovered/Resolved]
